FAERS Safety Report 9717393 (Version 3)
Quarter: 2013Q4

REPORT INFORMATION
  Report Type: Spontaneous
  Country: CN (occurrence: None)
  Receive Date: 20131125
  Receipt Date: 20131209
  Transmission Date: 20140711
  Serious: Yes (Hospitalization)
  Sender: FDA-Public Use
  Company Number: SYM-2013-13049

PATIENT
  Age: 56 Year
  Sex: Female

DRUGS (8)
  1. 5 FU [Suspect]
     Indication: COLORECTAL CANCER METASTATIC
     Route: 040
     Dates: start: 20130829, end: 20130829
  2. IRINOTECAN (IRINOTECAN) (SOLUTION FOR INFUSION) (IRINOTECAN) [Suspect]
     Indication: COLORECTAL CANCER METASTATIC
     Route: 041
     Dates: start: 20130829, end: 20130829
  3. LEUCOVORIN (FOLINIC ACID) (SOLUTION FOR INFUSION) (FOLINIC ACID) [Suspect]
     Indication: COLORECTAL CANCER METASTATIC
     Route: 041
     Dates: start: 20130829, end: 20130829
  4. BLINDED THERAPY [Suspect]
     Indication: COLORECTAL CANCER METASTATIC
     Route: 041
     Dates: start: 20130829, end: 20130829
  5. MECOBALAMIN (MECOBALAMIN) (MECOBALAMIN) [Concomitant]
  6. CELECOXIB (CELECOXIB) (CELECOXIB) [Concomitant]
  7. AMLODIPINE (AMLODIPINE) (AMLODIPINE) [Concomitant]
  8. OXYCODONE (OXYCODONE) (OXYCODONE) [Concomitant]

REACTIONS (1)
  - Thrombocytopenia [None]
